FAERS Safety Report 9690145 (Version 2)
Quarter: 2013Q4

REPORT INFORMATION
  Report Type: Report from Study
  Country: DE (occurrence: DE)
  Receive Date: 20131115
  Receipt Date: 20131115
  Transmission Date: 20140711
  Serious: Yes (Other)
  Sender: FDA-Public Use
  Company Number: PHHY2013DE081932

PATIENT
  Sex: Female
  Weight: 75 kg

DRUGS (7)
  1. ICL670A [Suspect]
     Indication: MYELODYSPLASTIC SYNDROME
     Dosage: 500 MG, DAILY (6.66MG/KG/DAY)
     Route: 048
     Dates: start: 20130313
  2. ICL670A [Suspect]
     Indication: IRON OVERLOAD
  3. ASS [Concomitant]
     Dosage: 100 MG, QD
  4. METOPROLOL [Concomitant]
     Dosage: 50 MG, QD
  5. RAMIPRIL [Concomitant]
     Dosage: 2.5 MG, QD
  6. SIMVASTATIN [Concomitant]
     Dosage: 20 MG, QD
  7. TORASEMIDE [Concomitant]
     Dosage: 5 MG, QD
     Dates: start: 20130417

REACTIONS (9)
  - Blood disorder [Unknown]
  - Bone marrow failure [Unknown]
  - Haemoglobin decreased [Not Recovered/Not Resolved]
  - Thrombocytopenia [Recovered/Resolved]
  - Dyspnoea [Unknown]
  - Anaemia [Unknown]
  - Leukopenia [Unknown]
  - Neutropenia [Unknown]
  - Fatigue [Unknown]
